FAERS Safety Report 9772525 (Version 1)
Quarter: 2013Q4

REPORT INFORMATION
  Report Type: Spontaneous
  Country: JP (occurrence: None)
  Receive Date: 20131217
  Receipt Date: 20131217
  Transmission Date: 20140711
  Serious: Yes (Hospitalization)
  Sender: FDA-Public Use
  Company Number: 7255950

PATIENT
  Age: 41 Year
  Sex: Female

DRUGS (2)
  1. LEVOTHYROXINE (LEVOTHYROXINE) [Suspect]
     Indication: HYPOTHYROIDISM
  2. METHIMAZOLE [Suspect]
     Indication: BASEDOW^S DISEASE
     Dosage: 15MG, 1 IN 1D)

REACTIONS (5)
  - Electrocardiogram QT prolonged [None]
  - Hypocalcaemia [None]
  - Blood pressure decreased [None]
  - Cholelithiasis [None]
  - Vitamin D deficiency [None]
